FAERS Safety Report 11773542 (Version 2)
Quarter: 2015Q4

REPORT INFORMATION
  Report Type: Spontaneous
  Country: PT (occurrence: PT)
  Receive Date: 20151124
  Receipt Date: 20151229
  Transmission Date: 20160304
  Serious: Yes (Other)
  Sender: FDA-Public Use
  Company Number: PT-TEVA-610417ISR

PATIENT
  Age: 44 Year
  Sex: Female
  Weight: 64 kg

DRUGS (5)
  1. CISPLATINA TEVA [Suspect]
     Active Substance: CISPLATIN
     Indication: UTERINE CANCER
     Dosage: CONCENTRATE FOR SOLUTION FOR INFUSION
     Route: 042
     Dates: start: 20140731
  2. ONDANSETROM - LABESFAL [Concomitant]
     Indication: PROPHYLAXIS
     Dosage: .381 MILLIGRAM DAILY;
     Route: 065
     Dates: start: 20140731
  3. EMEND [Concomitant]
     Active Substance: APREPITANT
     Indication: PROPHYLAXIS
     Dosage: 17.8571 MILLIGRAM DAILY;
     Route: 065
     Dates: start: 20140731
  4. CISPLATINA TEVA [Suspect]
     Active Substance: CISPLATIN
     Indication: OFF LABEL USE
  5. ORADEXON [Concomitant]
     Active Substance: DEXAMETHASONE
     Indication: PROPHYLAXIS
     Dosage: .4762 MILLIGRAM DAILY;
     Route: 065
     Dates: start: 20140731

REACTIONS (6)
  - Presyncope [Recovered/Resolved]
  - Abdominal pain [Recovered/Resolved]
  - Diarrhoea [Recovered/Resolved]
  - Off label use [Unknown]
  - Malaise [Recovered/Resolved]
  - Tachycardia [Recovered/Resolved]

NARRATIVE: CASE EVENT DATE: 20140731
